FAERS Safety Report 13596684 (Version 1)
Quarter: 2017Q2

REPORT INFORMATION
  Report Type: Spontaneous
  Country: US (occurrence: US)
  Receive Date: 20170531
  Receipt Date: 20170531
  Transmission Date: 20170830
  Serious: No
  Sender: FDA-Public Use
  Company Number: US-PFIZER INC-2017234450

PATIENT
  Age: 57 Year
  Sex: Male
  Weight: 122.47 kg

DRUGS (2)
  1. EUCRISA [Suspect]
     Active Substance: CRISABOROLE
     Indication: DERMATITIS
     Dosage: APPLIED TWICE A DAY
     Dates: start: 2017
  2. EUCRISA [Suspect]
     Active Substance: CRISABOROLE
     Dosage: APPLIED TWICE A DAY
     Dates: start: 2017

REACTIONS (1)
  - Drug ineffective [Unknown]
